FAERS Safety Report 21668504 (Version 2)
Quarter: 2022Q4

REPORT INFORMATION
  Report Type: Spontaneous
  Country: JP (occurrence: JP)
  Receive Date: 20221201
  Receipt Date: 20221212
  Transmission Date: 20230113
  Serious: No
  Sender: FDA-Public Use
  Company Number: JP-OTSUKA-2022_053123

PATIENT
  Age: 20 Year
  Sex: Female

DRUGS (4)
  1. ABILIFY [Suspect]
     Active Substance: ARIPIPRAZOLE
     Indication: Schizophrenia
     Dosage: 6MG, UNK
     Route: 065
     Dates: start: 2020, end: 2021
  2. ABILIFY [Suspect]
     Active Substance: ARIPIPRAZOLE
     Indication: Hyperprolactinaemia
     Dosage: 12MG, UNK
     Route: 065
     Dates: start: 2021, end: 2022
  3. ABILIFY [Suspect]
     Active Substance: ARIPIPRAZOLE
     Dosage: 21MG, UNK
     Route: 065
     Dates: start: 2022, end: 2022
  4. RISPERIDONE [Concomitant]
     Active Substance: RISPERIDONE
     Indication: Product used for unknown indication
     Dosage: 0.5MG, UNK
     Route: 065
     Dates: start: 2020

REACTIONS (2)
  - Product use in unapproved indication [Unknown]
  - No adverse event [Unknown]
